FAERS Safety Report 23432092 (Version 1)
Quarter: 2024Q1

REPORT INFORMATION
  Report Type: Other
  Country: US (occurrence: None)
  Receive Date: 20240123
  Receipt Date: 20240123
  Transmission Date: 20240410
  Serious: Yes (Other)
  Sender: FDA-Public Use
  Company Number: US-ROCHE-3495709

PATIENT
  Age: 90 Year
  Sex: Male

DRUGS (1)
  1. ROZLYTREK [Suspect]
     Active Substance: ENTRECTINIB
     Indication: Bronchial carcinoma
     Dosage: TAKE 3 CAPSULE(S) BY MOUTH (600MG) ONCE DAILY WITH OR WITHOUT FOOD
     Route: 048

REACTIONS (1)
  - Neoplasm malignant [Unknown]
